FAERS Safety Report 6994037-6 (Version None)
Quarter: 2010Q3

REPORT INFORMATION
  Report Type: 
  Country: None (occurrence: None)
  Receive Date: 20100917
  Receipt Date: 20080129
  Transmission Date: 20110219
  Serious: Yes (Hospitalization, Other)
  Sender: FDA-Public Use
  Company Number: US-ASTRAZENECA-2007UW05567

PATIENT
  Age: 10988 Day
  Sex: Female
  Weight: 62.1 kg

DRUGS (4)
  1. SEROQUEL [Suspect]
     Indication: SLEEP DISORDER
     Route: 048
     Dates: start: 20000101
  2. SEROQUEL [Suspect]
     Dosage: 25-200 MG
     Route: 048
     Dates: start: 20040127
  3. TEGRETOL [Concomitant]
     Dates: start: 20011007
  4. FAMOTIDINE [Concomitant]
     Dates: start: 20011007

REACTIONS (2)
  - PANCREATITIS CHRONIC [None]
  - PANCREATITIS RELAPSING [None]
